FAERS Safety Report 9029815 (Version 1)
Quarter: 2013Q1

REPORT INFORMATION
  Report Type: Spontaneous
  Country: US (occurrence: US)
  Receive Date: 20130124
  Receipt Date: 20130124
  Transmission Date: 20140127
  Serious: Yes (Other)
  Sender: FDA-Public Use
  Company Number: CHPA2013US000776

PATIENT
  Age: 31 Year
  Sex: Female

DRUGS (3)
  1. EXCEDRIN EXTRA STRENGTH [Suspect]
     Indication: MIGRAINE
     Dosage: 2 DF ABOUT 3 TIMES PER MONTH, UNK
     Route: 048
     Dates: start: 1997
  2. CALCIUM CARBONATE W/MAGNESIUM [Concomitant]
  3. SEROQUEL [Concomitant]
     Indication: SLEEP DISORDER

REACTIONS (4)
  - Tooth disorder [Recovered/Resolved]
  - Medication overuse headache [Not Recovered/Not Resolved]
  - Off label use [Unknown]
  - Inappropriate schedule of drug administration [Unknown]
